FAERS Safety Report 4365316-6 (Version None)
Quarter: 2004Q2

REPORT INFORMATION
  Report Type: 
  Country: None (occurrence: None)
  Receive Date: 20040521
  Receipt Date: 20040429
  Transmission Date: 20050107
  Serious: Yes (Other)
  Sender: FDA-Public Use
  Company Number: US_010872824

PATIENT
  Age: 32 Year
  Sex: Male
  Weight: 112 kg

DRUGS (5)
  1. HUMULIN R [Suspect]
     Indication: DIABETES MELLITUS
     Dosage: 22 U/DAY
     Dates: start: 19980101
  2. HUMULIN N [Suspect]
     Indication: DIABETES MELLITUS
     Dosage: 36 U/DAY
     Dates: start: 19980101, end: 20030101
  3. INSULIN [Suspect]
     Dates: start: 19780101
  4. LANTUS [Concomitant]
  5. GLUCOPHAGE [Concomitant]

REACTIONS (11)
  - BLINDNESS UNILATERAL [None]
  - BLOOD GLUCOSE INCREASED [None]
  - BLOOD PRESSURE INCREASED [None]
  - DRUG HYPERSENSITIVITY [None]
  - DRUG RESISTANCE [None]
  - EYE HAEMORRHAGE [None]
  - MUSCLE CRAMP [None]
  - OEDEMA [None]
  - POLLAKIURIA [None]
  - RETINAL DETACHMENT [None]
  - WEIGHT FLUCTUATION [None]
